FAERS Safety Report 7987615-9 (Version None)
Quarter: 2011Q4

REPORT INFORMATION
  Report Type: 
  Country: None (occurrence: None)
  Receive Date: 20111216
  Receipt Date: 20110201
  Transmission Date: 20120403
  Serious: No
  Sender: FDA-Public Use
  Company Number: US-BRISTOL-MYERS SQUIBB COMPANY-14560858

PATIENT
  Age: 36 Year
  Sex: Female
  Weight: 72 kg

DRUGS (2)
  1. ABILIFY [Suspect]
     Indication: DEPRESSION
     Dosage: DURATION OF THERAPY: 5 DOSES.
     Route: 048
     Dates: start: 20090313, end: 20090301
  2. ABILIFY [Suspect]
     Indication: MOOD SWINGS
     Dosage: DURATION OF THERAPY: 5 DOSES.
     Route: 048
     Dates: start: 20090313, end: 20090301

REACTIONS (4)
  - TREMOR [None]
  - PANIC ATTACK [None]
  - MEMORY IMPAIRMENT [None]
  - HYPERSENSITIVITY [None]
